FAERS Safety Report 8099208-6 (Version None)
Quarter: 2012Q1

REPORT INFORMATION
  Report Type: 
  Country: None (occurrence: None)
  Receive Date: 20120129
  Receipt Date: 20111005
  Transmission Date: 20120608
  Serious: No
  Sender: FDA-Public Use
  Company Number: US-ABBOTT-11P-163-0861086-00

PATIENT
  Age: 62 Year
  Sex: Female

DRUGS (6)
  1. CELEBREX [Concomitant]
     Indication: PAIN
     Route: 048
  2. PAXIL [Concomitant]
     Indication: ANXIETY
     Route: 048
  3. UNKNOWN MEDICATION [Concomitant]
     Indication: HYPERTENSION
  4. HUMIRA [Suspect]
     Indication: PSORIASIS
     Dates: start: 20110316, end: 20110901
  5. HUMIRA [Suspect]
     Indication: PSORIATIC ARTHROPATHY
  6. SIMVASTATIN [Concomitant]
     Indication: BLOOD CHOLESTEROL INCREASED
     Route: 048

REACTIONS (1)
  - DRUG INEFFECTIVE [None]
